FAERS Safety Report 14789566 (Version 1)
Quarter: 2018Q2

REPORT INFORMATION
  Report Type: Spontaneous
  Country: US (occurrence: US)
  Receive Date: 20180423
  Receipt Date: 20180423
  Transmission Date: 20180711
  Serious: No
  Sender: FDA-Public Use
  Company Number: US-TEVA-786900ACC

PATIENT
  Age: 89 Year
  Sex: Female

DRUGS (1)
  1. PRAVASTATIN. [Suspect]
     Active Substance: PRAVASTATIN
     Dosage: TAKING THIS PRODUCT FOR A YEAR

REACTIONS (6)
  - Product size issue [Unknown]
  - Product coating issue [Unknown]
  - Dysphagia [Unknown]
  - Product physical issue [Unknown]
  - Retching [Unknown]
  - Product taste abnormal [Unknown]
